FAERS Safety Report 7087402-2 (Version None)
Quarter: 2010Q4

REPORT INFORMATION
  Report Type: 
  Country: None (occurrence: None)
  Receive Date: 20101108
  Receipt Date: 20101026
  Transmission Date: 20110411
  Serious: No
  Sender: FDA-Public Use
  Company Number: US-BIOGENIDEC-2010BI018060

PATIENT
  Sex: Male

DRUGS (3)
  1. TYSABRI [Suspect]
     Indication: MULTIPLE SCLEROSIS
     Route: 042
     Dates: start: 20050215
  2. TYSABRI [Suspect]
     Route: 042
     Dates: start: 20070215, end: 20070925
  3. TYSABRI [Suspect]
     Route: 042
     Dates: start: 20090924

REACTIONS (16)
  - ASTHENIA [None]
  - BONE DISORDER [None]
  - CONSTIPATION [None]
  - DEPRESSION [None]
  - DIARRHOEA [None]
  - DRY THROAT [None]
  - EYE PRURITUS [None]
  - GAIT DISTURBANCE [None]
  - GOUT [None]
  - HYPOTENSION [None]
  - MEMORY IMPAIRMENT [None]
  - MENTAL IMPAIRMENT [None]
  - MENTAL STATUS CHANGES [None]
  - MICTURITION URGENCY [None]
  - MUSCLE SPASMS [None]
  - PAIN [None]
